FAERS Safety Report 5304420-2 (Version None)
Quarter: 2007Q2

REPORT INFORMATION
  Report Type: 
  Country: None (occurrence: None)
  Receive Date: 20070423
  Receipt Date: 20070413
  Transmission Date: 20071010
  Serious: Yes (Other)
  Sender: FDA-Public Use
  Company Number: US-PFIZER INC-2007016651

PATIENT
  Age: 90 Year
  Sex: Female

DRUGS (3)
  1. ZOLOFT [Suspect]
     Indication: PANIC ATTACK
  2. ZOLOFT [Suspect]
     Indication: DEPRESSION
  3. HYDROCODONE [Suspect]

REACTIONS (4)
  - CONFUSION POSTOPERATIVE [None]
  - FALL [None]
  - NERVE INJURY [None]
  - SPINAL COMPRESSION FRACTURE [None]
